FAERS Safety Report 9563479 (Version 1)
Quarter: 2013Q3

REPORT INFORMATION
  Report Type: Spontaneous
  Country: US (occurrence: None)
  Receive Date: 20130926
  Receipt Date: 20130926
  Transmission Date: 20140515
  Serious: Yes (Hospitalization)
  Sender: FDA-Public Use
  Company Number: None

PATIENT
  Age: 63 Year
  Sex: Female

DRUGS (2)
  1. COPAXONE [Suspect]
     Indication: MULTIPLE SCLEROSIS
  2. IVIG [Suspect]
     Indication: MULTIPLE SCLEROSIS

REACTIONS (5)
  - Multiple sclerosis [None]
  - Drug interaction [None]
  - Tremor [None]
  - Tremor [None]
  - Hypertension [None]
